FAERS Safety Report 8915878 (Version 2)
Quarter: 2012Q4

REPORT INFORMATION
  Report Type: 
  Country: DE (occurrence: DE)
  Receive Date: 20121119
  Receipt Date: 20121221
  Transmission Date: 20130627
  Serious: Yes (Life-Threatening, Hospitalization)
  Sender: FDA-Public Use
  Company Number: DE-MEDICIS-2012P1065140

PATIENT
  Age: 10 Year
  Sex: Female

DRUGS (1)
  1. AMMONAPS [Suspect]

REACTIONS (1)
  - Coma [Unknown]
